FAERS Safety Report 9528143 (Version 1)
Quarter: 2013Q3

REPORT INFORMATION
  Report Type: Spontaneous
  Country: US (occurrence: US)
  Receive Date: 20130917
  Receipt Date: 20130917
  Transmission Date: 20140515
  Serious: Yes (Other)
  Sender: FDA-Public Use
  Company Number: US-JNJFOC-20130906513

PATIENT
  Sex: Male

DRUGS (2)
  1. XARELTO [Suspect]
     Indication: VENA CAVA FILTER INSERTION
     Route: 048
  2. XARELTO [Suspect]
     Indication: DEEP VEIN THROMBOSIS
     Route: 048

REACTIONS (1)
  - Neuropathy peripheral [Unknown]
